FAERS Safety Report 5732016-7 (Version None)
Quarter: 2008Q2

REPORT INFORMATION
  Report Type: 
  Country: None (occurrence: None)
  Receive Date: 20080508
  Receipt Date: 20080430
  Transmission Date: 20081010
  Serious: Yes (Other)
  Sender: FDA-Public Use
  Company Number: US-WYE-H03871208

PATIENT
  Sex: Male

DRUGS (2)
  1. TYGACIL [Suspect]
     Indication: SKIN INFECTION
     Route: 042
  2. TYGACIL [Suspect]
     Indication: PERITONITIS

REACTIONS (2)
  - BONE MARROW FAILURE [None]
  - THROMBOCYTOPENIA [None]
